FAERS Safety Report 20814229 (Version 2)
Quarter: 2022Q3

REPORT INFORMATION
  Report Type: Spontaneous
  Country: US (occurrence: US)
  Receive Date: 20220511
  Receipt Date: 20220829
  Transmission Date: 20221027
  Serious: Yes (Other)
  Sender: FDA-Public Use
  Company Number: US-PFIZER INC-202200650786

PATIENT
  Age: 39 Year
  Sex: Female

DRUGS (9)
  1. BEVACIZUMAB [Suspect]
     Active Substance: BEVACIZUMAB
     Indication: Cervix cancer metastatic
     Dosage: 50% DOSE, 1ST CYCLE OF CHEMOTHERAPY
  2. BEVACIZUMAB [Suspect]
     Active Substance: BEVACIZUMAB
     Dosage: 2ND CYCLE OF CHEMOTHERAPY
  3. BEVACIZUMAB [Suspect]
     Active Substance: BEVACIZUMAB
     Dosage: 3RD CYCLE OF CHEMOTHERAPY
  4. PACLITAXEL [Suspect]
     Active Substance: PACLITAXEL
     Indication: Cervix cancer metastatic
     Dosage: 50% DOSE, 1ST CYCLE OF CHEMOTHERAPY
  5. PACLITAXEL [Suspect]
     Active Substance: PACLITAXEL
     Dosage: 2ND CYCLE OF CHEMOTHERAPY
  6. PACLITAXEL [Suspect]
     Active Substance: PACLITAXEL
     Dosage: 3RD CYCLE OF CHEMOTHERAPY
  7. CARBOPLATIN [Suspect]
     Active Substance: CARBOPLATIN
     Indication: Cervix cancer metastatic
     Dosage: 2ND CYCLE OF CHEMOTHERAPY
  8. CARBOPLATIN [Suspect]
     Active Substance: CARBOPLATIN
     Dosage: 3RD CYCLE OF CHEMOTHERAPY
  9. CISPLATIN [Suspect]
     Active Substance: CISPLATIN
     Indication: Cervix cancer metastatic
     Dosage: 50% DOSE, 1ST CYCLE OF CHEMOTHERAPY

REACTIONS (3)
  - Myelosuppression [Unknown]
  - Nephropathy toxic [Unknown]
  - Renal impairment [Unknown]
